FAERS Safety Report 22661425 (Version 1)
Quarter: 2023Q2

REPORT INFORMATION
  Report Type: Spontaneous
  Country: TW (occurrence: TW)
  Receive Date: 20230630
  Receipt Date: 20230630
  Transmission Date: 20230722
  Serious: No
  Sender: FDA-Public Use
  Company Number: TW-JAZZ-2022-TW-034386

PATIENT
  Age: 17 Year
  Sex: Female

DRUGS (9)
  1. CANNABIDIOL [Suspect]
     Active Substance: CANNABIDIOL
     Indication: Tuberous sclerosis complex
     Dosage: 2 MILLILITER, BID
     Dates: start: 20220620
  2. CANNABIDIOL [Suspect]
     Active Substance: CANNABIDIOL
     Dosage: 0.5 MILLILITER, BID
  3. EVEROLIMUS [Concomitant]
     Active Substance: EVEROLIMUS
     Dosage: UNK
  4. ACETAZOLAMIDE [Concomitant]
     Active Substance: ACETAZOLAMIDE
     Dosage: TWICE DAILY
  5. BRIVARACETAM [Concomitant]
     Active Substance: BRIVARACETAM
     Dosage: TWICE DAILY
  6. LACOSAMIDE [Concomitant]
     Active Substance: LACOSAMIDE
     Dosage: TWICE DAILY
  7. LAMOTRIGINE [Concomitant]
     Active Substance: LAMOTRIGINE
     Dosage: TWICE DAILY
  8. VALPROIC ACID (VPA) [Concomitant]
     Dosage: UNK
  9. VIGABATRIN (VGB) [Concomitant]
     Dosage: TWICE DAILY

REACTIONS (7)
  - Daydreaming [Unknown]
  - Inappropriate affect [Unknown]
  - Slow response to stimuli [Unknown]
  - Ataxia [Unknown]
  - Somnolence [Unknown]
  - Weight decreased [Unknown]
  - Unevaluable event [Unknown]
